FAERS Safety Report 21732472 (Version 3)
Quarter: 2023Q1

REPORT INFORMATION
  Report Type: Report from Study
  Country: PT (occurrence: PT)
  Receive Date: 20221215
  Receipt Date: 20230306
  Transmission Date: 20230418
  Serious: Yes (Other)
  Sender: FDA-Public Use
  Company Number: PT-ABBVIE-22K-130-4328538-00

PATIENT
  Age: 55 Year
  Sex: Male

DRUGS (49)
  1. CARBIDOPA\LEVODOPA [Suspect]
     Active Substance: CARBIDOPA\LEVODOPA
     Indication: Parkinson^s disease
     Dosage: 20 MG PLUS 5 MG MORN:10CC;MAIN:6CC/H;EXTRA:2CC?EVENT DEVICE LEAKAGE CESSASION DATE WAS 06/2022,  ...
     Route: 050
     Dates: start: 202203, end: 20220322
  2. CARBIDOPA\LEVODOPA [Suspect]
     Active Substance: CARBIDOPA\LEVODOPA
     Dosage: 20 MG PLUS 5 MG?MORN:10CC;MAIN:6.3CC/H;EXTRA:2CC
     Route: 050
     Dates: start: 20220322, end: 20220503
  3. CARBIDOPA\LEVODOPA [Suspect]
     Active Substance: CARBIDOPA\LEVODOPA
     Dosage: 20 MG + 5 MG?7.3CC/H(8AM-9PM);4CC/H(9PM-8AM);EXT5CC
     Route: 050
     Dates: start: 20230228
  4. CARBIDOPA\LEVODOPA [Suspect]
     Active Substance: CARBIDOPA\LEVODOPA
     Dosage: 20 MG PLUS 5 MG?MORN:13CC;MAIN:6.6CC/H;EXTRA:2CC
     Route: 050
     Dates: start: 20220503, end: 20220522
  5. CARBIDOPA\LEVODOPA [Suspect]
     Active Substance: CARBIDOPA\LEVODOPA
     Dosage: 20 MG PLUS 5 MG?MORN:13CC;MAIN:6.4CC/H;EXTRA:2CC
     Route: 050
     Dates: start: 20220522, end: 20220608
  6. CARBIDOPA\LEVODOPA [Suspect]
     Active Substance: CARBIDOPA\LEVODOPA
     Dosage: 20 MG PLUS 5 MG?MORNIN:13CC;MAINTE:6.4CC/H;EXTRA:4CC.
     Route: 050
     Dates: start: 20220608, end: 20221006
  7. CARBIDOPA\LEVODOPA [Suspect]
     Active Substance: CARBIDOPA\LEVODOPA
     Dosage: 20 MG + 5 MG?FREQUENCY TEXT: MAINT:7CC/H(8AM-9PM), 4CC/H(9PM-8PM)
     Route: 050
     Dates: start: 20221120, end: 20221125
  8. CARBIDOPA\LEVODOPA [Suspect]
     Active Substance: CARBIDOPA\LEVODOPA
     Dosage: 20 MG + 5 MG
     Route: 050
     Dates: start: 20230115, end: 20230228
  9. CARBIDOPA\LEVODOPA [Suspect]
     Active Substance: CARBIDOPA\LEVODOPA
     Dosage: 20 MG PLUS 5 MG?FREQUENCY TEXT: MORNIN:12CC;MAINTE:6.4CC/H;EXTRA:3CC
     Route: 050
     Dates: start: 20221015, end: 20221020
  10. CARBIDOPA\LEVODOPA [Suspect]
     Active Substance: CARBIDOPA\LEVODOPA
     Dosage: 20 MG + 5 MG
     Route: 050
     Dates: start: 20221107, end: 20221108
  11. CARBIDOPA\LEVODOPA [Suspect]
     Active Substance: CARBIDOPA\LEVODOPA
     Dosage: 20 MG PLUS 5 MG?FREQUENCY TEXT: MORN:11CC;MAINT:6.4CC/H;EXTRA:3CC.
     Route: 050
     Dates: start: 20221020, end: 20221021
  12. CARBIDOPA\LEVODOPA [Suspect]
     Active Substance: CARBIDOPA\LEVODOPA
     Dosage: 20 MG + 5 MG?FREQUENCY TEXT: MORN:11CC;MAINT:6.9CC/H;EXTRA:3CC?LAST ADMINSTARTION WAS OCT 2022
     Route: 050
     Dates: start: 20221021
  13. CARBIDOPA\LEVODOPA [Suspect]
     Active Substance: CARBIDOPA\LEVODOPA
     Dosage: 20 MG + 5 MG?FREQUENCY TEXT: MORNIN:13.5CC;MAINTE:6.4CC/H;EXTRA:4CC
     Route: 050
     Dates: start: 20221006, end: 20221015
  14. CARBIDOPA\LEVODOPA [Suspect]
     Active Substance: CARBIDOPA\LEVODOPA
     Dosage: 20 MG PLUS 5 MG?FREQUENCY TEXT: MORNIN:12CC;MAINTE:6.4CC/H;EXTRA:3CC
     Route: 050
     Dates: start: 20221015, end: 20221020
  15. CARBIDOPA\LEVODOPA [Suspect]
     Active Substance: CARBIDOPA\LEVODOPA
     Dosage: 20 MG + 5 MG?FREQUENCY TEXT: MAINT:10.5CC/H(8AM-9PM), 5CC/H(9PM-8PM)
     Route: 050
     Dates: start: 20221118, end: 20221119
  16. CARBIDOPA\LEVODOPA [Suspect]
     Active Substance: CARBIDOPA\LEVODOPA
     Dosage: 20 MG + 5 MG?FREQUENCY TEXT: MORN:11CC;MAINT:6.9CC/H;EXTRA:4CC?FIRST ADMINSTARTION WAS OCT 2022
     Route: 050
     Dates: end: 20221025
  17. CARBIDOPA\LEVODOPA [Suspect]
     Active Substance: CARBIDOPA\LEVODOPA
     Dosage: 20 MG + 5 MG?FREQUENCY TEXT: MORN:11CC;MAINT:6.4CC/H;EXTRA:3CC
     Route: 050
     Dates: start: 20221020, end: 20221021
  18. CARBIDOPA\LEVODOPA [Suspect]
     Active Substance: CARBIDOPA\LEVODOPA
     Dosage: 20 MG + 5 MG?FREQUENCY TEXT: MORN:9CC;MAINT:7.4CC/H;EXTRA:3CC
     Route: 050
     Dates: start: 20221105, end: 20221106
  19. CARBIDOPA\LEVODOPA [Suspect]
     Active Substance: CARBIDOPA\LEVODOPA
     Dosage: 20 MG + 5 MG?FREQUENCY TEXT: MORN:7CC;MAINT:9.4CC/H;EXTRA:3CC
     Route: 050
     Dates: start: 20221115, end: 20221115
  20. CARBIDOPA\LEVODOPA [Suspect]
     Active Substance: CARBIDOPA\LEVODOPA
     Dosage: 20 MG + 5 MG?FREQUENCY TEXT: MAINT:8CC/H(8AM-9PM), 3CC/H(9PM-8PM)
     Route: 050
     Dates: start: 20221119, end: 20221120
  21. CARBIDOPA\LEVODOPA [Suspect]
     Active Substance: CARBIDOPA\LEVODOPA
     Dosage: 20 MG + 5 MG?LAST ADMINSTRATION DATE WAS MAR 2022?FREQUENCY TEXT: MORN:9.5CC;MAIN:4.8CC/H;EXTRA:1CC
     Route: 050
     Dates: start: 20220303
  22. CARBIDOPA\LEVODOPA [Suspect]
     Active Substance: CARBIDOPA\LEVODOPA
     Dosage: 20 MG + 5 MG
     Dates: start: 20221107, end: 20221108
  23. CARBIDOPA\LEVODOPA [Suspect]
     Active Substance: CARBIDOPA\LEVODOPA
     Dosage: 20 MG + 5 MG?FREQUENCY TEXT: MORN:9CC;MAINT:7.9CC/H;EXTRA:3CC
     Route: 050
     Dates: start: 20221107, end: 20221108
  24. CARBIDOPA\LEVODOPA [Suspect]
     Active Substance: CARBIDOPA\LEVODOPA
     Dosage: 20 MG + 5 MG?FREQUENCY TEXT: MORN:9CC;MAINT:7.2CC/H;EXTRA:3CC
     Route: 050
     Dates: start: 20221104, end: 20221105
  25. CARBIDOPA\LEVODOPA [Suspect]
     Active Substance: CARBIDOPA\LEVODOPA
     Dosage: 20 MG + 5 MG?FREQUENCY TEXT: MORN:9CC;MAINT:7.7CC/H;EXTRA:3CC
     Route: 050
     Dates: start: 20221106, end: 20221107
  26. CARBIDOPA\LEVODOPA [Suspect]
     Active Substance: CARBIDOPA\LEVODOPA
     Dosage: 20 MG + 5 MG?FREQUENCY TEXT: MORN:11CC;MAINT:6.9CC/H;EXTRA:3CC
     Route: 050
     Dates: start: 20221025, end: 20221104
  27. CARBIDOPA\LEVODOPA [Suspect]
     Active Substance: CARBIDOPA\LEVODOPA
     Dosage: 20 MG + 5 MG?FREQUENCY TEXT: MORN:7CC;MAINT:8.2CC/H;EXTRA:3CC
     Route: 050
     Dates: start: 20221108, end: 20221110
  28. CARBIDOPA\LEVODOPA [Suspect]
     Active Substance: CARBIDOPA\LEVODOPA
     Dosage: 20 MG + 5 MG? FREQUENCY TEXT: MORN:7CC;MAINT:8.8CC/H;EXTRA:3CC
     Route: 050
     Dates: start: 20221110, end: 20221114
  29. CARBIDOPA\LEVODOPA [Suspect]
     Active Substance: CARBIDOPA\LEVODOPA
     Dosage: 20 MG + 5 MG
     Route: 050
     Dates: start: 20221116, end: 20221118
  30. CARBIDOPA\LEVODOPA [Suspect]
     Active Substance: CARBIDOPA\LEVODOPA
     Dosage: 20 MG + 5 MG?FIRST ADMINSTRATION DATE WAS DEC 2022?FREQUENCY TEXT: MAIN:7CC/H(8AM-9PM),4CC/H(9PM-...
     Route: 050
     Dates: start: 202212
  31. CARBIDOPA\LEVODOPA [Suspect]
     Active Substance: CARBIDOPA\LEVODOPA
     Dosage: 20 MG + 5 MG?FREQUENCY TEXT: MORN:7CC;MAINT:8.2CC/H;EXTRA:3CC?THERE ARE TWO LOT NUMBER MENTIONED ...
     Route: 050
     Dates: start: 20221107, end: 20221108
  32. CARBIDOPA\LEVODOPA [Suspect]
     Active Substance: CARBIDOPA\LEVODOPA
     Dosage: 20 MG + 5 MG?FREQUENCY TEXT: MORN:7CC;MAINT:9.1CC/H;EXTRA:3CC
     Route: 050
     Dates: start: 20221114, end: 20221115
  33. CARBIDOPA\LEVODOPA [Suspect]
     Active Substance: CARBIDOPA\LEVODOPA
     Dosage: 20 MG + 5 MG?FREQUENCY TEXT: MORN:7CC;MAINT:10CC/H;EXTRA:4CC
     Route: 050
     Dates: start: 20221115, end: 20221116
  34. CARBIDOPA\LEVODOPA [Suspect]
     Active Substance: CARBIDOPA\LEVODOPA
     Dosage: 20 MG + 5 MG?FREQUENCY TEXT: MORN:7CC;MAINT:10.5CC/H;EXTRA:4CC?LAST ADMINISTRATION DATE WAS DEC 2022
     Route: 050
     Dates: start: 20221209
  35. CARBIDOPA\LEVODOPA [Suspect]
     Active Substance: CARBIDOPA\LEVODOPA
     Dosage: 20 MG + 5 MG?FREQUENCY TEXT: MAINT:7CC/H(8AM-5PM), 4CC/H(5PM-8PM)
     Route: 050
     Dates: start: 20221125, end: 20221208
  36. CARBIDOPA\LEVODOPA [Suspect]
     Active Substance: CARBIDOPA\LEVODOPA
     Dosage: 20 MG + 5 MG?FIRST ADMINSTARTION WAS OCT 2022?FREQUENCY TEXT: MAINT:7CC/H(8AM-5PM), 4CC/H(5PM-8PM)
     Route: 050
     Dates: end: 20221025
  37. BENSERAZIDE HYDROCHLORIDE\LEVODOPA [Concomitant]
     Active Substance: BENSERAZIDE HYDROCHLORIDE\LEVODOPA
     Indication: Product used for unknown indication
     Dosage: START DATE TEXT: UNKNOWN?FREQUENCY TEXT: AT 8 PM
     Dates: end: 20220917
  38. BENSERAZIDE HYDROCHLORIDE\LEVODOPA [Concomitant]
     Active Substance: BENSERAZIDE HYDROCHLORIDE\LEVODOPA
     Indication: Product used for unknown indication
     Dosage: 2 TABLET?FREQUENCY TEXT: AT 8 PM AND AT 12PM
     Dates: start: 20221116, end: 20221117
  39. BENSERAZIDE HYDROCHLORIDE\LEVODOPA [Concomitant]
     Active Substance: BENSERAZIDE HYDROCHLORIDE\LEVODOPA
     Indication: Product used for unknown indication
     Dates: start: 20221208, end: 20221209
  40. BENSERAZIDE HYDROCHLORIDE\LEVODOPA [Concomitant]
     Active Substance: BENSERAZIDE HYDROCHLORIDE\LEVODOPA
     Indication: Product used for unknown indication
     Dosage: 0.5 TABLET?FREQUENCY TEXT: AT 8 PM
     Dates: start: 20221006, end: 20221116
  41. ESCITALOPRAM [Concomitant]
     Active Substance: ESCITALOPRAM OXALATE
     Indication: Product used for unknown indication
     Dosage: FORM STRENGTH: 20 MILLIGRAM?START DATE TEXT: BEFORE DUODOPA
  42. RIVOTRIL [Concomitant]
     Active Substance: CLONAZEPAM
     Indication: Product used for unknown indication
     Dosage: 0,5MG + 0 + 2MG?START DATE TEXT: BEFORE DUODOPA
  43. QUETIAPINE [Concomitant]
     Active Substance: QUETIAPINE
     Indication: Product used for unknown indication
     Dosage: 50 MG + 100MG + 150MG?START DATE TEXT: BEFORE DUODOPA
  44. SILODOSIN [Concomitant]
     Active Substance: SILODOSIN
     Indication: Product used for unknown indication
     Dosage: FORM STRENGTH: 8 MILLIGRAM?START DATE TEXT: BEFORE DUODOPA
  45. LYRICA [Concomitant]
     Active Substance: PREGABALIN
     Indication: Product used for unknown indication
     Dosage: TIME INTERVAL: 0.33333333 DAYS: FORM STRENGTH: 100 MILLIGRAM?START DATE TEXT: BEFORE DUODOPA
  46. RIVASTIGMINE [Concomitant]
     Active Substance: RIVASTIGMINE
     Indication: Parkinsonism
     Route: 062
     Dates: start: 2022
  47. AVODART [Concomitant]
     Active Substance: DUTASTERIDE
     Indication: Product used for unknown indication
     Dosage: FORM STRENGTH: 0.5 MILLIGRAM?START DATE TEXT: BEFORE DUODOPA
  48. MELATONIN [Concomitant]
     Active Substance: MELATONIN
     Indication: Product used for unknown indication
     Dosage: 2 TABLET?FORM STRENGTH: 2 MILLIGRAM?BEFORE DUODOPA
  49. Rivastigmina teva [Concomitant]
     Indication: Memory impairment
     Route: 062
     Dates: start: 2022

REACTIONS (38)
  - Head injury [Recovered/Resolved]
  - Speech disorder [Recovered/Resolved]
  - Skin laceration [Recovered/Resolved]
  - Limb injury [Recovered/Resolved]
  - Limb injury [Unknown]
  - Dyskinesia [Recovered/Resolved]
  - Impulsive behaviour [Recovered/Resolved]
  - Fall [Recovered/Resolved]
  - Dyskinesia [Recovered/Resolved]
  - Device leakage [Recovered/Resolved]
  - Device issue [Unknown]
  - Fall [Recovered/Resolved]
  - Fall [Recovered/Resolved]
  - On and off phenomenon [Not Recovered/Not Resolved]
  - Dyskinesia [Recovered/Resolved]
  - Dyskinesia [Recovered/Resolved]
  - Hyperkinesia [Recovered/Resolved]
  - Freezing phenomenon [Recovering/Resolving]
  - Off label use [Unknown]
  - Dyskinesia [Recovered/Resolved]
  - Freezing phenomenon [Recovered/Resolved]
  - Abnormal behaviour [Recovered/Resolved]
  - Restlessness [Recovered/Resolved]
  - Unevaluable event [Recovered/Resolved]
  - Parkinson^s disease [Recovered/Resolved]
  - Dyskinesia [Recovered/Resolved]
  - Musculoskeletal pain [Recovered/Resolved]
  - Bradykinesia [Recovered/Resolved]
  - Device leakage [Recovered/Resolved]
  - Torticollis [Recovered/Resolved]
  - Dyskinesia [Recovered/Resolved]
  - Speech disorder [Recovering/Resolving]
  - Dyskinesia [Recovering/Resolving]
  - Therapeutic product effect incomplete [Recovered/Resolved]
  - Dyskinesia [Recovered/Resolved]
  - Skin laceration [Recovered/Resolved]
  - Dyskinesia [Recovered/Resolved]
  - Therapeutic product effect incomplete [Not Recovered/Not Resolved]

NARRATIVE: CASE EVENT DATE: 20220320
